FAERS Safety Report 5675760-2 (Version None)
Quarter: 2008Q1

REPORT INFORMATION
  Report Type: 
  Country: None (occurrence: None)
  Receive Date: 20080318
  Receipt Date: 20080311
  Transmission Date: 20080703
  Serious: Yes (Other)
  Sender: FDA-Public Use
  Company Number: CHPA2008US04460

PATIENT
  Age: 49 Year
  Sex: Male

DRUGS (4)
  1. BENEFIBER UNKNOWN (NCH) (UNKNOWN) UNKNOWN [Suspect]
     Indication: NUTRITIONAL SUPPORT
     Dosage: 4 TO 6 TSP, QD, ORAL; 2 TSP, BID, ORAL
     Route: 048
     Dates: end: 20080312
  2. BENEFIBER UNKNOWN (NCH) (UNKNOWN) UNKNOWN [Suspect]
     Indication: NUTRITIONAL SUPPORT
     Dosage: 4 TO 6 TSP, QD, ORAL; 2 TSP, BID, ORAL
     Route: 048
     Dates: start: 20080310
  3. CLARITIN [Concomitant]
  4. MULTIVITAMINS (ASCORBIC ACID, ERGOCALCIFEROL, FOLIC ACID, NICOTINAMIDE [Concomitant]

REACTIONS (2)
  - DIVERTICULITIS [None]
  - FAECAL INCONTINENCE [None]
